FAERS Safety Report 5592387-1 (Version None)
Quarter: 2008Q1

REPORT INFORMATION
  Report Type: 
  Country: None (occurrence: None)
  Receive Date: 20080115
  Receipt Date: 20080108
  Transmission Date: 20080703
  Serious: Yes (Hospitalization)
  Sender: FDA-Public Use
  Company Number: US-GILEAD-2008-0014884

PATIENT
  Sex: Female
  Weight: 92.162 kg

DRUGS (19)
  1. LETAIRIS [Suspect]
     Indication: PULMONARY HYPERTENSION
     Route: 048
     Dates: start: 20071001
  2. REVATIO [Concomitant]
     Route: 065
  3. ACTIGALL [Concomitant]
     Route: 065
  4. LEXAPRO [Concomitant]
     Route: 065
  5. SPIRONOLACTONE [Concomitant]
     Route: 065
  6. LEVOTHYROXINE SODIUM [Concomitant]
     Route: 065
  7. BONIVA [Concomitant]
     Dosage: 1 INJECTION EVERY 3 MONTHS
     Route: 065
  8. LASIX [Concomitant]
     Route: 065
  9. BENADRYL [Concomitant]
     Route: 065
  10. SENNA [Concomitant]
     Route: 065
  11. SPIRIVA [Concomitant]
     Route: 055
  12. OMEPRAZOLE [Concomitant]
     Route: 065
  13. ALBUTEROL [Concomitant]
     Route: 054
  14. VITAMIN CAP [Concomitant]
     Route: 065
  15. CALCIUM GLUCONATE [Concomitant]
     Route: 065
  16. VITAMIN D [Concomitant]
     Route: 065
  17. VITAMIN E [Concomitant]
     Route: 065
  18. TIAZAC [Concomitant]
     Route: 065
  19. OXYGEN [Concomitant]
     Dosage: 4 LITERS/MINUTE
     Route: 055
     Dates: start: 20070201

REACTIONS (3)
  - CONSTIPATION [None]
  - OEDEMA PERIPHERAL [None]
  - WEIGHT INCREASED [None]
